FAERS Safety Report 25623648 (Version 1)
Quarter: 2025Q3

REPORT INFORMATION
  Report Type: Spontaneous
  Country: US (occurrence: US)
  Receive Date: 20250730
  Receipt Date: 20250730
  Transmission Date: 20251020
  Serious: No
  Sender: TEVA
  Company Number: US-TEVA-VS-3351862

PATIENT
  Age: 47 Year
  Sex: Female
  Weight: 57.1 kg

DRUGS (1)
  1. AJOVY [Suspect]
     Active Substance: FREMANEZUMAB-VFRM
     Indication: Product used for unknown indication
     Route: 058
     Dates: start: 20250422, end: 20250710

REACTIONS (2)
  - Headache [Unknown]
  - Hypersensitivity [Unknown]
